FAERS Safety Report 25264247 (Version 4)
Quarter: 2025Q2

REPORT INFORMATION
  Report Type: Spontaneous
  Country: JP (occurrence: JP)
  Receive Date: 20250502
  Receipt Date: 20250519
  Transmission Date: 20250717
  Serious: Yes (Other)
  Sender: MERCK SHARP & DOHME LLC
  Company Number: JP-009507513-2270870

PATIENT
  Age: 64 Year
  Sex: Female

DRUGS (14)
  1. KEYTRUDA [Suspect]
     Active Substance: PEMBROLIZUMAB
     Indication: Cervix carcinoma
     Dosage: 200 MG ONCE EVERY 3 WEEKS
     Route: 042
     Dates: start: 20241217, end: 20250311
  2. CARBOPLATIN [Concomitant]
     Active Substance: CARBOPLATIN
     Route: 042
  3. PACLITAXEL [Concomitant]
     Active Substance: PACLITAXEL
     Route: 042
  4. AVASTIN [Suspect]
     Active Substance: BEVACIZUMAB
     Indication: Cervix carcinoma
     Dosage: 795 MG QD
     Route: 042
     Dates: start: 20250311
  5. DEXAMETHASONE [Concomitant]
     Active Substance: DEXAMETHASONE
     Route: 042
     Dates: start: 20250311, end: 20250311
  6. FAMOTIDINE [Concomitant]
     Active Substance: FAMOTIDINE
     Route: 042
     Dates: start: 20250311, end: 20250311
  7. PALONOSETRON [Concomitant]
     Active Substance: PALONOSETRON
     Route: 042
     Dates: start: 20250311, end: 20250311
  8. AMLODIPINE [Concomitant]
     Active Substance: AMLODIPINE BESYLATE
     Route: 048
  9. MAGNESIUM OXIDE [Concomitant]
     Active Substance: MAGNESIUM OXIDE
     Route: 048
  10. AZILSARTAN KAMEDOXOMIL [Concomitant]
     Active Substance: AZILSARTAN KAMEDOXOMIL
     Route: 048
     Dates: start: 20250313
  11. APREPITANT [Concomitant]
     Active Substance: APREPITANT
     Route: 048
     Dates: start: 20250311, end: 20250311
  12. APREPITANT [Concomitant]
     Active Substance: APREPITANT
     Route: 048
     Dates: start: 20250312, end: 20250313
  13. DIPHENHYDRAMINE [Concomitant]
     Active Substance: DIPHENHYDRAMINE
     Route: 048
     Dates: start: 20250311, end: 20250311
  14. INSULIN LISPRO [Concomitant]
     Active Substance: INSULIN LISPRO
     Route: 058

REACTIONS (2)
  - Blood triglycerides increased [Recovering/Resolving]
  - Blood cholesterol increased [Recovering/Resolving]

NARRATIVE: CASE EVENT DATE: 20250301
